FAERS Safety Report 6562070-4 (Version None)
Quarter: 2010Q1

REPORT INFORMATION
  Report Type: 
  Country: None (occurrence: None)
  Receive Date: 20100130
  Receipt Date: 20091109
  Transmission Date: 20100710
  Serious: Yes (Other)
  Sender: FDA-Public Use
  Company Number: US-ABBOTT-09P-163-0606094-00

PATIENT
  Sex: Male
  Weight: 96.248 kg

DRUGS (4)
  1. HUMIRA [Suspect]
     Indication: PSORIASIS
     Route: 058
     Dates: start: 20060501
  2. HUMIRA [Suspect]
     Indication: PSORIATIC ARTHROPATHY
     Route: 058
  3. LAMISIL [Concomitant]
     Indication: FUNGAL INFECTION
  4. H1N1 VACCINE [Concomitant]
     Indication: PROPHYLAXIS
     Dosage: ROUTE: INTRANASAL
     Dates: start: 20091029, end: 20091029

REACTIONS (4)
  - BASAL CELL CARCINOMA [None]
  - FUNGAL INFECTION [None]
  - H1N1 INFLUENZA [None]
  - MEDICATION ERROR [None]
